FAERS Safety Report 8380326-X (Version None)
Quarter: 2012Q2

REPORT INFORMATION
  Report Type: 
  Country: None (occurrence: None)
  Receive Date: 20120523
  Receipt Date: 20120517
  Transmission Date: 20120825
  Serious: Yes (Hospitalization)
  Sender: FDA-Public Use
  Company Number: US-PFIZER INC-2012120844

PATIENT
  Sex: Male
  Weight: 79.365 kg

DRUGS (2)
  1. BENAZEPRIL [Concomitant]
     Indication: HYPERTENSION
     Dosage: 20 MG, DAILY
  2. LIPITOR [Suspect]
     Indication: BLOOD CHOLESTEROL INCREASED
     Dosage: 40 MG, DAILY
     Route: 048
     Dates: end: 20111201

REACTIONS (1)
  - VASCULAR GRAFT [None]
